FAERS Safety Report 10086689 (Version 3)
Quarter: 2014Q2

REPORT INFORMATION
  Report Type: Spontaneous
  Country: JP (occurrence: JP)
  Receive Date: 20140418
  Receipt Date: 20140606
  Transmission Date: 20141212
  Serious: Yes (Other)
  Sender: FDA-Public Use
  Company Number: JP-BRISTOL-MYERS SQUIBB COMPANY-20573291

PATIENT
  Age: 85 Year
  Sex: Female
  Weight: 57 kg

DRUGS (18)
  1. BYDUREON [Suspect]
     Indication: TYPE 2 DIABETES MELLITUS
     Route: 058
     Dates: start: 20140308, end: 20140311
  2. DIART [Concomitant]
     Route: 048
  3. ALLOPURINOL [Concomitant]
     Dosage: TABS
     Route: 048
  4. NEUROTROPIN [Concomitant]
     Dosage: TABS
     Route: 048
  5. ONON [Concomitant]
     Dosage: CAPS
     Route: 048
  6. SLO-BID [Concomitant]
     Dosage: CAPSULE
     Route: 048
  7. URSODEOXYCHOLIC ACID [Concomitant]
     Dosage: TABS
     Route: 048
  8. YODEL-S [Concomitant]
     Dosage: TABS
     Route: 048
  9. BROTIZOLAM [Concomitant]
     Route: 048
  10. LUPRAC [Concomitant]
     Dosage: TABS
     Route: 048
  11. FEBUXOSTAT [Concomitant]
     Dosage: TABS
     Route: 048
  12. REBAMIPIDE [Concomitant]
     Dosage: TABS
     Route: 048
  13. POTASSIUM ASPARTATE [Concomitant]
     Route: 048
  14. ROZEREM [Concomitant]
     Route: 048
  15. ALDACTONE A [Concomitant]
     Route: 048
  16. REPAGLINIDE [Concomitant]
     Dosage: TABS
     Route: 048
  17. SEIBULE [Concomitant]
     Route: 048
  18. SEIBULE [Concomitant]
     Dosage: TABS
     Route: 048

REACTIONS (1)
  - Myotonia [Recovered/Resolved]
